FAERS Safety Report 4316853-1 (Version None)
Quarter: 2004Q1

REPORT INFORMATION
  Report Type: 
  Country: None (occurrence: None)
  Receive Date: 20040309
  Receipt Date: 20040121
  Transmission Date: 20041129
  Serious: Yes (Other)
  Sender: FDA-Public Use
  Company Number: A03200400164

PATIENT
  Age: 65 Year
  Sex: Female
  Weight: 77.5651 kg

DRUGS (6)
  1. ELOXATIN [Suspect]
     Indication: COLON CANCER
     Dosage: 154 MG/M2 OTHER - INTRAVENOUS NOS
     Route: 042
     Dates: start: 20040113, end: 20040113
  2. ELOXATIN [Suspect]
     Indication: METASTASES TO LIVER
     Dosage: 154 MG/M2 OTHER - INTRAVENOUS NOS
     Route: 042
     Dates: start: 20040113, end: 20040113
  3. LEUCOVORIN [Concomitant]
  4. DEXAMETHASONE [Concomitant]
  5. CALCIUM/MAGNESIUM [Concomitant]
  6. DOLASETRON MESILATE [Concomitant]

REACTIONS (6)
  - BLOOD PRESSURE INCREASED [None]
  - CHEST DISCOMFORT [None]
  - DYSPNOEA [None]
  - FEELING HOT [None]
  - FLUSHING [None]
  - NAUSEA [None]
